FAERS Safety Report 6220317-8 (Version None)
Quarter: 2009Q2

REPORT INFORMATION
  Report Type: 
  Country: None (occurrence: None)
  Receive Date: 20090529
  Receipt Date: 20090518
  Transmission Date: 20091009
  Serious: Yes (Hospitalization, Other)
  Sender: FDA-Public Use
  Company Number: THYM-11475

PATIENT
  Age: 24 Year
  Sex: Female
  Weight: 87.8 kg

DRUGS (25)
  1. THYMOGLOBULIN [Suspect]
     Indication: PROPHYLAXIS AGAINST TRANSPLANT REJECTION
     Dosage: 175 MG, QD; SUBCUTANEOUS
     Route: 058
     Dates: start: 20070420, end: 20070422
  2. TACROLIMUS [Concomitant]
  3. MYCOPHENOLIC ACID [Concomitant]
  4. PREDNISONE TAB [Concomitant]
  5. METHYLPREDNISOLONE [Concomitant]
  6. SOLU-MEDROL [Concomitant]
  7. DOCUSATE-SENNA [Concomitant]
  8. FAMOTIDINE [Concomitant]
  9. ATORVASTATIN CALCIUM [Concomitant]
  10. HEPARIN [Concomitant]
  11. MORPHINE [Concomitant]
  12. VALGANCICLOVIR HCL [Concomitant]
  13. SITAGLIPTIN (SITAGLIPTIN) [Concomitant]
  14. ASPIRIN [Concomitant]
  15. AMLODIPINE [Concomitant]
  16. ALLOPURINOL [Concomitant]
  17. INSULIN ASPARTAME [Concomitant]
  18. FLUCONAZOLE [Concomitant]
  19. ERGOCALCIFEROL [Concomitant]
  20. DAPSONE [Concomitant]
  21. EPOETIN [Concomitant]
  22. LABETALOL HCL [Concomitant]
  23. LOSARTAN POTASSIUM [Concomitant]
  24. SODIUM BICARBONATE IN PLASTIC CONTAINER [Concomitant]
  25. OMEGA 3 ACID ETHYL ESTER [Concomitant]

REACTIONS (5)
  - CHEST DISCOMFORT [None]
  - DYSPNOEA [None]
  - HYPOPHAGIA [None]
  - MOBILITY DECREASED [None]
  - SERUM SICKNESS [None]
